FAERS Safety Report 6908093-4 (Version None)
Quarter: 2010Q3

REPORT INFORMATION
  Report Type: 
  Country: None (occurrence: None)
  Receive Date: 20100805
  Receipt Date: 20100804
  Transmission Date: 20110219
  Serious: Yes (Other)
  Sender: FDA-Public Use
  Company Number: IT-EISAI INC.-E2080-00317-SPO-IT

PATIENT
  Sex: Female

DRUGS (5)
  1. INOVELON [Suspect]
     Indication: ENCEPHALOPATHY
     Route: 048
     Dates: start: 20091115, end: 20100201
  2. INOVELON [Suspect]
     Route: 048
     Dates: start: 20100201, end: 20100515
  3. ACETAZOLAMIDE [Concomitant]
  4. NITRAZEPAM [Concomitant]
  5. LEVETIRACETAM [Concomitant]

REACTIONS (2)
  - CONDUCT DISORDER [None]
  - HEADACHE [None]
